FAERS Safety Report 5353208-5 (Version None)
Quarter: 2007Q2

REPORT INFORMATION
  Report Type: 
  Country: None (occurrence: None)
  Receive Date: 20070608
  Receipt Date: 20070530
  Transmission Date: 20071010
  Serious: Yes (Hospitalization)
  Sender: FDA-Public Use
  Company Number: 2007BI011863

PATIENT
  Age: 28 Year
  Sex: Male
  Weight: 77.1115 kg

DRUGS (1)
  1. NATALIZUMAB [Suspect]
     Indication: MULTIPLE SCLEROSIS
     Dosage: QM IV
     Route: 042
     Dates: start: 20070503

REACTIONS (8)
  - ASTHENIA [None]
  - FATIGUE [None]
  - GAIT DISTURBANCE [None]
  - MULTIPLE SCLEROSIS [None]
  - PAIN IN EXTREMITY [None]
  - URINARY TRACT INFECTION [None]
  - VISUAL DISTURBANCE [None]
  - VOMITING [None]
